FAERS Safety Report 10208008 (Version 1)
Quarter: 2014Q2

REPORT INFORMATION
  Report Type: Spontaneous
  Country: IT (occurrence: None)
  Receive Date: 20140527
  Receipt Date: 20140527
  Transmission Date: 20141212
  Serious: Yes (Other)
  Sender: FDA-Public Use
  Company Number: 2345534

PATIENT
  Age: 63 Year
  Sex: Female

DRUGS (10)
  1. GEMCITABINE HYDROCHLORIDE [Suspect]
     Indication: LUNG NEOPLASM
     Dosage: CYCLICAL
     Route: 042
     Dates: start: 20131205, end: 20131205
  2. CISPLATIN [Suspect]
     Indication: LUNG NEOPLASM
     Dosage: CYCLICAL
     Route: 042
     Dates: start: 20131205, end: 20131205
  3. TAREG [Concomitant]
  4. CARDIAZOL-PARACODINA [Concomitant]
  5. STILNOX [Concomitant]
  6. TACHIDOL [Concomitant]
  7. PANTORC [Concomitant]
  8. GASTROGEL /00066001/ [Concomitant]
  9. PLASIL /00041901/ [Concomitant]
  10. DELTACORTENE [Concomitant]

REACTIONS (5)
  - Abdominal pain upper [None]
  - Dehydration [None]
  - Asthenia [None]
  - Nausea [None]
  - Diarrhoea [None]
